APPROVED DRUG PRODUCT: HEPARIN SODIUM
Active Ingredient: HEPARIN SODIUM
Strength: 5,000 UNITS/ML
Dosage Form/Route: INJECTABLE;INJECTION
Application: A090808 | Product #002 | TE Code: AP
Applicant: SAGENT PHARMACEUTICALS INC
Approved: Jun 30, 2010 | RLD: No | RS: No | Type: RX